FAERS Safety Report 14716166 (Version 7)
Quarter: 2018Q3

REPORT INFORMATION
  Report Type: Report from Study
  Country: US (occurrence: US)
  Receive Date: 20180404
  Receipt Date: 20180726
  Transmission Date: 20181010
  Serious: Yes (Death, Hospitalization, Other)
  Sender: FDA-Public Use
  Company Number: US-EXELIXIS-CABO-18013255

PATIENT
  Age: 59 Year
  Sex: Male

DRUGS (15)
  1. GLIPIZIDE. [Concomitant]
     Active Substance: GLIPIZIDE
     Dosage: UNK
  2. LACTULOSE. [Suspect]
     Active Substance: LACTULOSE
     Dosage: UNK
  3. PROAIR HFA [Concomitant]
     Active Substance: ALBUTEROL SULFATE
     Dosage: UNK
  4. VITAMIN D2 [Concomitant]
     Active Substance: ERGOCALCIFEROL
     Dosage: UNK
  5. LEVOTHYROXINE SODIUM. [Concomitant]
     Active Substance: LEVOTHYROXINE SODIUM
     Dosage: UNK
  6. PRAVASTATIN SODIUM. [Concomitant]
     Active Substance: PRAVASTATIN SODIUM
     Dosage: UNK
  7. METFORMIN [Concomitant]
     Active Substance: METFORMIN HYDROCHLORIDE
     Dosage: UNK
  8. CABOMETYX [Suspect]
     Active Substance: CABOZANTINIB S-MALATE
     Indication: RENAL CANCER
     Dosage: 60 MG, 2 DAYS ON AND 1 DAY OFF
     Route: 048
     Dates: start: 20170210, end: 201804
  9. CABOMETYX [Suspect]
     Active Substance: CABOZANTINIB S-MALATE
     Dosage: 60 MG, 3 DAYS ON AND 1 DAY OFF
     Route: 048
     Dates: start: 20180616
  10. CABOMETYX [Suspect]
     Active Substance: CABOZANTINIB S-MALATE
     Dosage: 60 MG, 2 DAYS ON AND 1 DAY OFF
     Route: 048
     Dates: start: 2018, end: 201806
  11. ADVAIR HFA [Concomitant]
     Active Substance: FLUTICASONE PROPIONATE\SALMETEROL XINAFOATE
     Dosage: UNK
  12. ADVIL [Concomitant]
     Active Substance: IBUPROFEN
     Dosage: UNK
  13. FLONASE [Concomitant]
     Active Substance: FLUTICASONE PROPIONATE
     Dosage: UNK
  14. MIDODRINE HCL [Concomitant]
     Active Substance: MIDODRINE HYDROCHLORIDE
     Dosage: UNK
  15. SYMBICORT [Concomitant]
     Active Substance: BUDESONIDE\FORMOTEROL FUMARATE DIHYDRATE
     Dosage: UNK

REACTIONS (17)
  - Blood pressure decreased [Unknown]
  - Oral candidiasis [Unknown]
  - Aphonia [Unknown]
  - Agitation [Unknown]
  - Pleurisy [Unknown]
  - Cerebral disorder [Unknown]
  - Pneumonia [Unknown]
  - Device dislocation [Recovered/Resolved]
  - Weight decreased [Unknown]
  - Dysphagia [Unknown]
  - Dehydration [Unknown]
  - Diarrhoea [Unknown]
  - Delayed recovery from anaesthesia [Recovered/Resolved]
  - Renal impairment [Unknown]
  - Decubitus ulcer [Unknown]
  - Death [Fatal]
  - Hepatic failure [Unknown]

NARRATIVE: CASE EVENT DATE: 201710
